FAERS Safety Report 6465959-X (Version None)
Quarter: 2009Q4

REPORT INFORMATION
  Report Type: 
  Country: None (occurrence: None)
  Receive Date: 20091202
  Receipt Date: 20091121
  Transmission Date: 20100525
  Serious: Yes (Other)
  Sender: FDA-Public Use
  Company Number: US-RB-025962-09

PATIENT
  Sex: Male

DRUGS (2)
  1. DELSYM ADULT GRAPE 3 OZ [Suspect]
     Dosage: DRANK 2 ENTIRE BOTTLES OF PRODUCT
     Route: 048
     Dates: start: 20091121
  2. MARIJUA [Suspect]

REACTIONS (3)
  - ATAXIA [None]
  - CONFUSIONAL STATE [None]
  - INTENTIONAL DRUG MISUSE [None]
